FAERS Safety Report 13278151 (Version 6)
Quarter: 2017Q4

REPORT INFORMATION
  Report Type: Spontaneous
  Country: KR (occurrence: KR)
  Receive Date: 20170228
  Receipt Date: 20171220
  Transmission Date: 20180320
  Serious: Yes (Other)
  Sender: FDA-Public Use
  Company Number: PHHY2017KR029754

PATIENT
  Age: 48 Year
  Sex: Female

DRUGS (4)
  1. TELBIVUDINE [Suspect]
     Active Substance: TELBIVUDINE
     Indication: CHRONIC HEPATITIS B
     Dosage: 600 MG, QD
     Route: 065
     Dates: start: 20101012, end: 201312
  2. FEBUXOSTAT. [Suspect]
     Active Substance: FEBUXOSTAT
     Indication: PRODUCT USED FOR UNKNOWN INDICATION
     Dosage: 40 MG, QD
     Route: 065
  3. ROSUVASTATIN. [Suspect]
     Active Substance: ROSUVASTATIN
     Indication: PRODUCT USED FOR UNKNOWN INDICATION
     Dosage: 10 MG, QD
     Route: 065
     Dates: end: 201312
  4. TELBIVUDINE [Suspect]
     Active Substance: TELBIVUDINE
     Indication: HEPATIC CIRRHOSIS

REACTIONS (6)
  - Gait disturbance [Unknown]
  - Mitochondrial myopathy [Recovering/Resolving]
  - Myalgia [Unknown]
  - Fatigue [Unknown]
  - Muscular weakness [Unknown]
  - Hepatocellular carcinoma [Unknown]

NARRATIVE: CASE EVENT DATE: 2011
